FAERS Safety Report 5938649-7 (Version None)
Quarter: 2008Q4

REPORT INFORMATION
  Report Type: 
  Country: None (occurrence: None)
  Receive Date: 20081103
  Receipt Date: 20081020
  Transmission Date: 20090506
  Serious: Yes (Hospitalization)
  Sender: FDA-Public Use
  Company Number: JP-ROCHE-593856

PATIENT
  Age: 23 Year
  Sex: Male

DRUGS (4)
  1. RIVOTRIL [Suspect]
     Indication: EPILEPSY
     Route: 048
     Dates: start: 19860101
  2. TEGRETOL [Suspect]
     Indication: DRUG USE FOR UNKNOWN INDICATION
     Dosage: FORM REPORTED AS ORAL FORMULATION (NOS).
     Route: 048
  3. PENTOBARBITAL SODIUM [Suspect]
     Indication: DRUG USE FOR UNKNOWN INDICATION
     Route: 048
  4. CHLORAL HYDRATE [Suspect]
     Indication: DRUG USE FOR UNKNOWN INDICATION
     Route: 048

REACTIONS (3)
  - EYELID OEDEMA [None]
  - FACE OEDEMA [None]
  - STEVENS-JOHNSON SYNDROME [None]
